FAERS Safety Report 20861660 (Version 5)
Quarter: 2022Q3

REPORT INFORMATION
  Report Type: Spontaneous
  Country: US (occurrence: US)
  Receive Date: 20220523
  Receipt Date: 20220922
  Transmission Date: 20221026
  Serious: No
  Sender: FDA-Public Use
  Company Number: US-BRISTOL-MYERS SQUIBB COMPANY-2022-033649

PATIENT
  Age: 60 Year
  Sex: Male

DRUGS (2)
  1. REVLIMID [Suspect]
     Active Substance: LENALIDOMIDE
     Indication: Plasma cell myeloma
     Dosage: FREQUENCY ^TAKE 1 CAPSULE BY MOUTH DAILY FOR 14 DAYS OUT OF 21 DAYS^
     Route: 048
     Dates: start: 20220418
  2. REVLIMID [Suspect]
     Active Substance: LENALIDOMIDE
     Dosage: FREQUENCY ^TAKE 1 CAPSULE BY MOUTH DAILY FOR 14 DAYS OUT OF 21 DAYS^
     Route: 048
     Dates: start: 20220418

REACTIONS (7)
  - Adverse event [Recovered/Resolved]
  - Intentional product use issue [Unknown]
  - Product distribution issue [Recovered/Resolved]
  - Constipation [Unknown]
  - Fatigue [Unknown]
  - Insomnia [Unknown]
  - Feeling abnormal [Unknown]

NARRATIVE: CASE EVENT DATE: 20220418
